FAERS Safety Report 15037720 (Version 1)
Quarter: 2018Q2

REPORT INFORMATION
  Report Type: Report from Study
  Country: FR (occurrence: FR)
  Receive Date: 20180620
  Receipt Date: 20180620
  Transmission Date: 20180711
  Serious: Yes (Other)
  Sender: FDA-Public Use
  Company Number: FR-PFIZER INC-2018244585

PATIENT
  Age: 51 Year
  Sex: Male

DRUGS (12)
  1. IRINOTECAN HCL [Suspect]
     Active Substance: IRINOTECAN HYDROCHLORIDE
     Dosage: 280 MG, CYCLIC
     Route: 041
     Dates: start: 20151012, end: 20151012
  2. FLUOROURACIL. [Suspect]
     Active Substance: FLUOROURACIL
     Dosage: 850 MG, CYCLIC
     Route: 040
     Dates: start: 20151012, end: 20151012
  3. IRINOTECAN HCL [Suspect]
     Active Substance: IRINOTECAN HYDROCHLORIDE
     Indication: COLORECTAL CANCER METASTATIC
     Dosage: 380 MG, CYCLIC
     Route: 041
     Dates: start: 20150507, end: 20150507
  4. ONDANSETRON [Concomitant]
     Active Substance: ONDANSETRON
     Dosage: UNK
     Dates: start: 201507
  5. AFLIBERCEPT [Suspect]
     Active Substance: AFLIBERCEPT
     Dosage: 328 MG, CYCLIC
     Route: 041
     Dates: start: 20151012, end: 20151012
  6. CALCIUM FOLINATE [Suspect]
     Active Substance: LEUCOVORIN CALCIUM
     Dosage: 410 MG, CYCLIC
     Route: 041
     Dates: start: 20151012, end: 20151012
  7. FLUOROURACIL. [Suspect]
     Active Substance: FLUOROURACIL
     Indication: COLORECTAL CANCER METASTATIC
     Dosage: 850 MG, CYCLIC
     Route: 040
     Dates: start: 20150507, end: 20150507
  8. CALCIUM FOLINATE [Suspect]
     Active Substance: LEUCOVORIN CALCIUM
     Indication: COLORECTAL CANCER METASTATIC
     Dosage: 420 MG, CYCLIC
     Route: 041
     Dates: start: 20150507, end: 20150507
  9. AFLIBERCEPT [Suspect]
     Active Substance: AFLIBERCEPT
     Indication: COLORECTAL CANCER METASTATIC
     Dosage: 340 MG, CYCLIC
     Route: 041
     Dates: start: 20150604, end: 20150604
  10. FLUOROURACIL. [Suspect]
     Active Substance: FLUOROURACIL
     Dosage: 5050 MG, CYCLIC
     Route: 041
     Dates: start: 20150507, end: 20150507
  11. FLUOROURACIL. [Suspect]
     Active Substance: FLUOROURACIL
     Dosage: 4950 MG, CYCLIC
     Route: 041
     Dates: start: 20151012, end: 20151012
  12. EMEND [Concomitant]
     Active Substance: APREPITANT
     Dates: start: 20150507

REACTIONS (2)
  - Tooth abscess [Unknown]
  - Osteonecrosis of jaw [Recovering/Resolving]

NARRATIVE: CASE EVENT DATE: 201510
